FAERS Safety Report 9727956 (Version 3)
Quarter: 2014Q1

REPORT INFORMATION
  Report Type: Report from Study
  Country: JP (occurrence: JP)
  Receive Date: 20131204
  Receipt Date: 20140222
  Transmission Date: 20141002
  Serious: Yes (Other)
  Sender: FDA-Public Use
  Company Number: JP-ROCHE-1313235

PATIENT
  Sex: 0

DRUGS (1)
  1. ALTEPLASE [Suspect]
     Indication: ISCHAEMIC STROKE
     Dosage: THERAPY DURATION: ONCE
     Route: 042

REACTIONS (3)
  - Altered state of consciousness [Unknown]
  - Cerebral haemorrhage [Unknown]
  - Cerebral haematoma [Unknown]
